FAERS Safety Report 10400195 (Version 1)
Quarter: 2014Q3

REPORT INFORMATION
  Report Type: Spontaneous
  Country: US (occurrence: US)
  Receive Date: 20140821
  Receipt Date: 20140821
  Transmission Date: 20150326
  Serious: Yes (Other)
  Sender: FDA-Public Use
  Company Number: US-009507513-1408USA011524

PATIENT
  Sex: Female

DRUGS (1)
  1. NUVARING [Suspect]
     Active Substance: ETHINYL ESTRADIOL\ETONOGESTREL
     Indication: PRODUCT USED FOR UNKNOWN INDICATION
     Dosage: UNK
     Route: 067
     Dates: start: 20070117

REACTIONS (3)
  - Maternal exposure before pregnancy [Recovered/Resolved]
  - Umbilical cord vascular disorder [Unknown]
  - Foetal death [Unknown]

NARRATIVE: CASE EVENT DATE: 201110
